FAERS Safety Report 20850736 (Version 2)
Quarter: 2022Q2

REPORT INFORMATION
  Report Type: Spontaneous
  Country: IT (occurrence: IT)
  Receive Date: 20220519
  Receipt Date: 20220603
  Transmission Date: 20220720
  Serious: Yes (Other)
  Sender: FDA-Public Use
  Company Number: IT-ROCHE-3088050

PATIENT
  Age: 6 Year
  Sex: Male

DRUGS (6)
  1. FLUDARABINE [Suspect]
     Active Substance: FLUDARABINE PHOSPHATE
     Indication: Prophylaxis against graft versus host disease
     Dosage: UNK, 120 OR 160 MG/M2 TOTAL DOSE, DAYS -6 TO -3
     Route: 065
  2. VALGANCICLOVIR [Suspect]
     Active Substance: VALGANCICLOVIR
     Indication: Cytomegalovirus infection
     Dosage: UNK
     Route: 065
  3. ATG-FRESENIUS [Suspect]
     Active Substance: LAPINE T-LYMPHOCYTE IMMUNE GLOBULIN
     Indication: Prophylaxis against graft versus host disease
     Dosage: 12 MILLIGRAM/KILOGRAM, DAYS -4 TO -2
     Route: 065
  4. ATG-FRESENIUS [Suspect]
     Active Substance: LAPINE T-LYMPHOCYTE IMMUNE GLOBULIN
     Indication: Allogenic stem cell transplantation
  5. CYCLOPHOSPHAMIDE [Suspect]
     Active Substance: CYCLOPHOSPHAMIDE
     Indication: Prophylaxis against graft versus host disease
     Dosage: UNK, TOTAL DOSE, DAYS -6 TO -3
     Route: 065
  6. RITUXIMAB [Suspect]
     Active Substance: RITUXIMAB
     Indication: Prophylaxis against graft versus host disease
     Dosage: 200 MILLIGRAM/SQ. METER (ON DAY 1)
     Route: 042

REACTIONS (2)
  - Cytomegalovirus infection [Recovered/Resolved]
  - Off label use [Unknown]
